FAERS Safety Report 10265555 (Version 2)
Quarter: 2014Q3

REPORT INFORMATION
  Report Type: Spontaneous
  Country: US (occurrence: US)
  Receive Date: 20140627
  Receipt Date: 20140813
  Transmission Date: 20150326
  Serious: No
  Sender: FDA-Public Use
  Company Number: US-ASTRAZENECA-2014SE45148

PATIENT
  Age: 24900 Day
  Sex: Female
  Weight: 59 kg

DRUGS (5)
  1. PROAIR HFA [Concomitant]
     Active Substance: ALBUTEROL SULFATE
     Dosage: 8.5GM PRN
     Route: 055
     Dates: start: 20140529
  2. SYMBICORT [Suspect]
     Active Substance: BUDESONIDE\FORMOTEROL FUMARATE DIHYDRATE
     Indication: DYSPNOEA
     Dosage: DOSAGE: 80/4.5, FREQUENCY: DAILY
     Route: 055
     Dates: start: 201406
  3. PERCOCET [Concomitant]
     Active Substance: ACETAMINOPHEN\OXYCODONE HYDROCHLORIDE
     Indication: BACK PAIN
     Dosage: 1 PILL TID
     Route: 048
     Dates: start: 2013
  4. BACLOFEN. [Concomitant]
     Active Substance: BACLOFEN
     Indication: BACK PAIN
     Dosage: 1 PILL QID
     Route: 048
     Dates: start: 2013
  5. SYMBICORT [Suspect]
     Active Substance: BUDESONIDE\FORMOTEROL FUMARATE DIHYDRATE
     Indication: DYSPNOEA
     Dosage: 80/4.5, 2 PUFFS,  TWO TIMES A DAY
     Route: 055
     Dates: start: 20140529

REACTIONS (4)
  - Intentional product misuse [Unknown]
  - Circumstance or information capable of leading to medication error [Unknown]
  - Diarrhoea [Recovered/Resolved]
  - Device misuse [Unknown]

NARRATIVE: CASE EVENT DATE: 20140529
